FAERS Safety Report 14416191 (Version 1)
Quarter: 2018Q1

REPORT INFORMATION
  Report Type: Spontaneous
  Country: NO (occurrence: NO)
  Receive Date: 20180122
  Receipt Date: 20180122
  Transmission Date: 20180509
  Serious: Yes (Other)
  Sender: FDA-Public Use
  Company Number: NO-AUROBINDO-AUR-APL-2018-003210

PATIENT

DRUGS (10)
  1. OLANZAPINE. [Suspect]
     Active Substance: OLANZAPINE
     Indication: PRODUCT USED FOR UNKNOWN INDICATION
     Route: 065
  2. SEROXAT [Suspect]
     Active Substance: PAROXETINE HYDROCHLORIDE
     Indication: PRODUCT USED FOR UNKNOWN INDICATION
     Route: 065
  3. CIPRAMIL                           /00582602/ [Suspect]
     Active Substance: CITALOPRAM HYDROBROMIDE
     Indication: PRODUCT USED FOR UNKNOWN INDICATION
     Route: 065
  4. SEROQUEL [Suspect]
     Active Substance: QUETIAPINE FUMARATE
     Indication: PRODUCT USED FOR UNKNOWN INDICATION
     Route: 065
  5. ZYPREXA [Suspect]
     Active Substance: OLANZAPINE
     Indication: PRODUCT USED FOR UNKNOWN INDICATION
     Route: 065
  6. VALPROAT [Suspect]
     Active Substance: VALPROATE SODIUM
     Indication: PRODUCT USED FOR UNKNOWN INDICATION
     Route: 065
  7. LAMICTAL [Suspect]
     Active Substance: LAMOTRIGINE
     Indication: PRODUCT USED FOR UNKNOWN INDICATION
     Route: 065
  8. ORFIRIL [Suspect]
     Active Substance: VALPROATE SODIUM
     Indication: PRODUCT USED FOR UNKNOWN INDICATION
     Route: 065
  9. EFEXOR [Suspect]
     Active Substance: VENLAFAXINE HYDROCHLORIDE
     Indication: PRODUCT USED FOR UNKNOWN INDICATION
     Route: 065
  10. CIPRALEX [Suspect]
     Active Substance: ESCITALOPRAM OXALATE
     Indication: PRODUCT USED FOR UNKNOWN INDICATION
     Route: 065

REACTIONS (22)
  - Hypomania [Recovered/Resolved]
  - Derealisation [Recovered/Resolved]
  - Disturbance in attention [Recovered/Resolved]
  - Bipolar disorder [Recovered/Resolved]
  - Impaired work ability [Recovered/Resolved]
  - Malaise [Recovered/Resolved]
  - Drug abuse [Recovered/Resolved]
  - Memory impairment [Recovered/Resolved]
  - Quality of life decreased [Recovered/Resolved]
  - Irritability [Recovered/Resolved]
  - Disturbance in social behaviour [Recovered/Resolved]
  - Personality disorder [Recovered/Resolved]
  - Mania [Recovered/Resolved]
  - Logorrhoea [Recovered/Resolved]
  - Dizziness [Recovered/Resolved]
  - Drug ineffective [Unknown]
  - Restlessness [Recovered/Resolved]
  - Depression [Recovered/Resolved]
  - Aggression [Recovered/Resolved]
  - Alcohol abuse [Recovered/Resolved]
  - Judgement impaired [Recovered/Resolved]
  - Agitation [Recovered/Resolved]
